FAERS Safety Report 9277392 (Version 1)
Quarter: 2013Q2

REPORT INFORMATION
  Report Type: Spontaneous
  Country: US (occurrence: None)
  Receive Date: 20130507
  Receipt Date: 20130507
  Transmission Date: 20140414
  Serious: Yes (Death, Congenital Anomaly)
  Sender: FDA-Public Use
  Company Number: None

PATIENT
  Age: 1 Month
  Sex: Male
  Weight: .74 kg

DRUGS (1)
  1. LISINOPRIL + HYDROCHLOROTHIAZIDE [Suspect]
     Indication: HYPERTENSION
     Dosage: 1 TABLET DAILY BY MOUTH?PRIOR TO PREGNANCY TO 02/20/2013
     Route: 048
     Dates: end: 20130220

REACTIONS (16)
  - Maternal drugs affecting foetus [None]
  - Premature baby [None]
  - Caesarean section [None]
  - Breech presentation [None]
  - Oligohydramnios [None]
  - Pneumothorax [None]
  - Pulmonary haemorrhage [None]
  - Pulmonary hypertension [None]
  - Renal failure neonatal [None]
  - Apnoea neonatal [None]
  - Patent ductus arteriosus [None]
  - Atrial septal defect [None]
  - Thrombocytopenia neonatal [None]
  - Anaemia neonatal [None]
  - Hypokalaemia [None]
  - Hyponatraemia [None]
